FAERS Safety Report 6971938 (Version 3)
Quarter: 2013Q2

REPORT INFORMATION
  Report Type: Spontaneous
  Country: US (occurrence: US)
  Receive Date: 20090417
  Receipt Date: 20130410
  Transmission Date: 20140414
  Serious: Yes (Hospitalization, Other)
  Sender: FDA-Public Use
  Company Number: US-RB-014235-09

PATIENT
  Age: 1 Day
  Sex: Male

DRUGS (3)
  1. SUBUTEX [Suspect]
     Indication: DRUG ABUSE
     Route: 064
     Dates: start: 20080930, end: 20090128
  2. SUBUTEX [Suspect]
     Route: 064
     Dates: start: 20090129, end: 20090309
  3. PERCOCET [Suspect]
     Indication: PAIN
     Dosage: MOTHER TOOK 1-2 TABLETS EVERY 4 HOURS AS NEEDED FOR PAIN
     Route: 064
     Dates: start: 20081128

REACTIONS (5)
  - Foetal exposure during pregnancy [Recovered/Resolved]
  - Premature baby [Recovered/Resolved]
  - Drug withdrawal syndrome neonatal [Recovered/Resolved]
  - Grunting [Recovered/Resolved]
  - Use of accessory respiratory muscles [Recovered/Resolved]
